FAERS Safety Report 7805645-4 (Version None)
Quarter: 2011Q4

REPORT INFORMATION
  Report Type: 
  Country: None (occurrence: None)
  Receive Date: 20111010
  Receipt Date: 20111005
  Transmission Date: 20120403
  Serious: Yes (Other)
  Sender: FDA-Public Use
  Company Number: FR-BRISTOL-MYERS SQUIBB COMPANY-16137911

PATIENT
  Age: 61 Year
  Sex: Female
  Weight: 108 kg

DRUGS (1)
  1. IPILIMUMAB [Suspect]
     Indication: MALIGNANT MELANOMA
     Dosage: 1ST COURSE:27SEP10, 18OCT10, 10NOV10, 30NOV10(4 INF),2ND CO:MAR-MAY11,3RD COURSE:14SEP10, 1ST INF
     Dates: start: 20100927

REACTIONS (3)
  - HYPONATRAEMIA [None]
  - NEOPLASM MALIGNANT [None]
  - BLOOD THYROID STIMULATING HORMONE INCREASED [None]
